FAERS Safety Report 24907802 (Version 1)
Quarter: 2025Q1

REPORT INFORMATION
  Report Type: Report from Study
  Country: DE (occurrence: DE)
  Receive Date: 20250131
  Receipt Date: 20250131
  Transmission Date: 20250408
  Serious: Yes (Other)
  Sender: TEVA
  Company Number: DE-ROCHE-2123584

PATIENT
  Age: 43 Year
  Sex: Female

DRUGS (18)
  1. PREGABALIN [Suspect]
     Active Substance: PREGABALIN
     Indication: Product used for unknown indication
     Route: 065
     Dates: start: 2018, end: 2018
  2. LEVOTHYROXINE SODIUM [Suspect]
     Active Substance: LEVOTHYROXINE SODIUM
     Indication: Product used for unknown indication
     Dosage: DOSAGE TEXT: 12.5MCG
     Route: 065
  3. LEVOTHYROXINE SODIUM [Suspect]
     Active Substance: LEVOTHYROXINE SODIUM
     Indication: Product used for unknown indication
     Dosage: DOSAGE TEXT: 25MCG
     Route: 065
  4. OCREVUS [Suspect]
     Active Substance: OCRELIZUMAB
     Indication: Primary progressive multiple sclerosis
     Route: 042
     Dates: start: 20190426
  5. OCREVUS [Suspect]
     Active Substance: OCRELIZUMAB
     Indication: Primary progressive multiple sclerosis
     Route: 042
     Dates: start: 20200428
  6. OCREVUS [Suspect]
     Active Substance: OCRELIZUMAB
     Indication: Primary progressive multiple sclerosis
     Route: 042
     Dates: start: 20180423
  7. OCREVUS [Suspect]
     Active Substance: OCRELIZUMAB
     Indication: Primary progressive multiple sclerosis
     Route: 042
     Dates: start: 20181023
  8. OCREVUS [Suspect]
     Active Substance: OCRELIZUMAB
     Indication: Primary progressive multiple sclerosis
     Route: 042
     Dates: start: 20191010
  9. ENALAPRIL [Concomitant]
     Active Substance: ENALAPRIL
     Route: 065
  10. ENALAPRIL [Concomitant]
     Active Substance: ENALAPRIL
     Dosage: DOSAGE TEXT: 20MG
     Route: 065
  11. ENALAPRIL [Concomitant]
     Active Substance: ENALAPRIL
     Dosage: DOSAGE TEXT: 10MG
     Route: 065
  12. METFORMIN [Concomitant]
     Active Substance: METFORMIN HYDROCHLORIDE
     Dosage: DOSAGE TEXT: 1-0-1
     Route: 065
  13. METFORMIN [Concomitant]
     Active Substance: METFORMIN HYDROCHLORIDE
     Dosage: DOSAGE TEXT: 1-0-1
     Route: 065
  14. AMLODIPINE BESYLATE [Concomitant]
     Active Substance: AMLODIPINE BESYLATE
     Dosage: DOSAGE TEXT: 5MG
     Route: 065
  15. SPASMEX [Concomitant]
     Dosage: DOSAGE TEXT: 15MG
     Route: 065
  16. ASPIRIN [Concomitant]
     Active Substance: ASPIRIN
     Dosage: DOSAGE TEXT: 100MG
     Route: 065
  17. BISOPROLOL [Concomitant]
     Active Substance: BISOPROLOL
     Dosage: DOSAGE TEXT: 5MG
     Route: 065
  18. SIMVASTATIN [Concomitant]
     Active Substance: SIMVASTATIN
     Dosage: DOSAGE TEXT: 20MG
     Route: 065

REACTIONS (47)
  - Multiple sclerosis [Not Recovered/Not Resolved]
  - Burning sensation [Not Recovered/Not Resolved]
  - Hypertension [Not Recovered/Not Resolved]
  - Palpitations [Recovered/Resolved]
  - Dysmenorrhoea [Recovered/Resolved]
  - Micturition urgency [Recovered/Resolved]
  - Nausea [Recovered/Resolved]
  - Panic attack [Recovered/Resolved]
  - Abdominal discomfort [Recovered/Resolved]
  - Inflammatory marker increased [Recovered/Resolved]
  - Neuralgia [Not Recovered/Not Resolved]
  - Hypoaesthesia [Not Recovered/Not Resolved]
  - Malaise [Recovered/Resolved]
  - Back pain [Recovering/Resolving]
  - Fear of falling [Recovered/Resolved]
  - Blood pressure increased [Recovered/Resolved]
  - Bladder dysfunction [Recovered/Resolved]
  - Accidental overdose [Unknown]
  - Dysaesthesia [Not Recovered/Not Resolved]
  - Flushing [Recovered/Resolved]
  - Choking sensation [Recovered/Resolved]
  - Muscle tightness [Recovering/Resolving]
  - Exercise tolerance decreased [Recovered/Resolved]
  - Drug dependence [Recovered/Resolved]
  - Musculoskeletal stiffness [Not Recovered/Not Resolved]
  - Feeling hot [Not Recovered/Not Resolved]
  - Dizziness [Recovered/Resolved]
  - Muscle spasticity [Not Recovered/Not Resolved]
  - Cardiac disorder [Unknown]
  - Walking disability [Recovered/Resolved]
  - Gait disturbance [Not Recovered/Not Resolved]
  - Seasonal allergy [Unknown]
  - Initial insomnia [Recovered/Resolved]
  - Muscle spasms [Recovered/Resolved]
  - Nasopharyngitis [Recovered/Resolved]
  - Thyroid mass [Unknown]
  - Tremor [Not Recovered/Not Resolved]
  - Fatigue [Recovered/Resolved]
  - Nasopharyngitis [Recovering/Resolving]
  - Discomfort [Recovered/Resolved]
  - Crying [Recovering/Resolving]
  - Toothache [Recovered/Resolved]
  - Anxiety [Recovered/Resolved]
  - Vision blurred [Recovered/Resolved]
  - Headache [Recovered/Resolved]
  - Drug ineffective [Unknown]
  - Cystitis noninfective [Recovered/Resolved]

NARRATIVE: CASE EVENT DATE: 20180101
